FAERS Safety Report 8473617-5 (Version None)
Quarter: 2012Q2

REPORT INFORMATION
  Report Type: 
  Country: None (occurrence: None)
  Receive Date: 20120628
  Receipt Date: 20110810
  Transmission Date: 20120825
  Serious: Yes (Other)
  Sender: FDA-Public Use
  Company Number: US-MYLANLABS-2011S1014179

PATIENT
  Age: 54 Year
  Sex: Male

DRUGS (15)
  1. LISINOPRIL [Concomitant]
  2. SYNTHROID [Concomitant]
  3. SEROQUEL [Concomitant]
  4. PLAVIX [Concomitant]
  5. TRICOR [Concomitant]
  6. CLONAZEPAM [Concomitant]
  7. ZOCOR [Concomitant]
  8. BENZTROPINE MESYLATE [Concomitant]
  9. CLOZAPINE [Suspect]
     Route: 048
     Dates: start: 20090201, end: 20110601
  10. ASPIRIN [Concomitant]
  11. PROTONIX [Concomitant]
  12. COLACE [Concomitant]
  13. WELLBUTRIN XL [Concomitant]
  14. PERIACTIN [Concomitant]
  15. TRAZODONE HCL [Concomitant]

REACTIONS (2)
  - GRANULOCYTOPENIA [None]
  - LEUKOPENIA [None]
